FAERS Safety Report 10161359 (Version 1)
Quarter: 2014Q2

REPORT INFORMATION
  Report Type: Spontaneous
  Country: US (occurrence: DE)
  Receive Date: 20140509
  Receipt Date: 20140509
  Transmission Date: 20141212
  Serious: Yes (Other)
  Sender: FDA-Public Use
  Company Number: 2014SP002432

PATIENT
  Age: 73 Year
  Sex: Female

DRUGS (1)
  1. METHOTREXATE [Suspect]
     Indication: RHEUMATIC DISORDER
     Dates: start: 1994

REACTIONS (4)
  - Cataract [Unknown]
  - Madarosis [Unknown]
  - Blepharitis [Unknown]
  - Osteoarthritis [Unknown]
